FAERS Safety Report 7435678-1 (Version None)
Quarter: 2011Q2

REPORT INFORMATION
  Report Type: 
  Country: None (occurrence: None)
  Receive Date: 20110425
  Receipt Date: 20110414
  Transmission Date: 20111010
  Serious: Yes (Other)
  Sender: FDA-Public Use
  Company Number: PHHY2011GB31054

PATIENT
  Sex: Female

DRUGS (1)
  1. LAMOTRIGINE [Suspect]
     Indication: CONVULSION
     Dates: end: 20080701

REACTIONS (2)
  - ALANINE AMINOTRANSFERASE INCREASED [None]
  - ORAL HAIRY LEUKOPLAKIA [None]
